FAERS Safety Report 10073379 (Version 1)
Quarter: 2014Q2

REPORT INFORMATION
  Report Type: Report from Study
  Country: GB (occurrence: GB)
  Receive Date: 20140411
  Receipt Date: 20140411
  Transmission Date: 20141212
  Serious: Yes (Other)
  Sender: FDA-Public Use
  Company Number: PHFR2014GB002702

PATIENT
  Sex: 0

DRUGS (4)
  1. GILENYA [Suspect]
     Indication: MULTIPLE SCLEROSIS
     Dosage: 1 DF, QD
     Route: 048
  2. GILENYA [Suspect]
     Dosage: 1 DF, QD
     Route: 048
  3. COPAXONE [Suspect]
     Indication: MULTIPLE SCLEROSIS
     Dosage: DAILY INJECTION OR THRICE A WEEK
     Route: 065
  4. DIMETHYL FUMARATE [Suspect]
     Indication: MULTIPLE SCLEROSIS
     Dosage: 1 DF, BID
     Route: 048

REACTIONS (12)
  - Palpitations [Unknown]
  - Flushing [Unknown]
  - Hot flush [Unknown]
  - Chest discomfort [Unknown]
  - Nausea [Unknown]
  - Tremor [Unknown]
  - Injection site bruising [Unknown]
  - Rash [Unknown]
  - Pain [Unknown]
  - Pruritus [Unknown]
  - Hepatic enzyme increased [Unknown]
  - White blood cell count decreased [Unknown]
